FAERS Safety Report 6305270-0 (Version None)
Quarter: 2009Q3

REPORT INFORMATION
  Report Type: 
  Country: None (occurrence: None)
  Receive Date: 20090810
  Receipt Date: 20090810
  Transmission Date: 20100115
  Serious: No
  Sender: FDA-Public Use
  Company Number: None

PATIENT
  Sex: Female
  Weight: 79.3795 kg

DRUGS (1)
  1. OMEPRAZOLE [Suspect]
     Indication: GASTROOESOPHAGEAL REFLUX DISEASE
     Dosage: 20MG TABLET ONCE Q 2 OR 3 DAYS ORAL
     Route: 048
     Dates: start: 20080801, end: 20090701

REACTIONS (2)
  - BLOOD URINE PRESENT [None]
  - URETHRITIS [None]
